FAERS Safety Report 8712699 (Version 3)
Quarter: 2012Q4

REPORT INFORMATION
  Report Type: 
  Country: SE (occurrence: SE)
  Receive Date: 20120808
  Receipt Date: 20121211
  Transmission Date: 20130627
  Serious: Yes (Other)
  Sender: FDA-Public Use
  Company Number: SE-AMGEN-SWESP2012047571

PATIENT
  Age: 2 Year
  Sex: Female

DRUGS (6)
  1. NEUPOGEN [Suspect]
     Indication: INFANTILE GENETIC AGRANULOCYTOSIS
     Dosage: 0.3 mg/ml, (0.3 ml 1 time and 0.92ml 2 times)
     Route: 058
     Dates: start: 20051001, end: 20060301
  2. FLUDARA [Concomitant]
     Dosage: UNK
  3. TREOSULFAN [Concomitant]
     Dosage: UNK
  4. CYCLOSPORINE [Concomitant]
     Dosage: UNK
  5. PREDNISOLONE [Concomitant]
     Dosage: UNK
  6. METHOTREXATE [Concomitant]
     Dosage: UNK

REACTIONS (1)
  - Drug resistance [Unknown]
